FAERS Safety Report 21187200 (Version 1)
Quarter: 2022Q3

REPORT INFORMATION
  Report Type: Other
  Country: None (occurrence: GB)
  Receive Date: 20220808
  Receipt Date: 20220808
  Transmission Date: 20221026
  Serious: Yes (Hospitalization, Other)
  Sender: FDA-Public Use
  Company Number: GB-Breckenridge Pharmaceutical, Inc.-2131607

PATIENT
  Sex: Male

DRUGS (12)
  1. OMEPRAZOLE [Suspect]
     Active Substance: OMEPRAZOLE
     Route: 048
  2. BISOPROLOL. [Concomitant]
     Active Substance: BISOPROLOL FUMARATE
  3. ERYTHROPOIETIN [Suspect]
     Active Substance: ERYTHROPOIETIN
  4. FINASTERIDE [Concomitant]
     Active Substance: FINASTERIDE
  5. FOLIC ACID [Concomitant]
     Active Substance: FOLIC ACID
  6. LEVOTHYROXINE [Concomitant]
     Active Substance: LEVOTHYROXINE
  7. SOLIRIS [Suspect]
     Active Substance: ECULIZUMAB
  8. PENICILLIN V POTASIUM [Concomitant]
     Active Substance: PENICILLIN V POTASSIUM
  9. SIMVASTATIN [Concomitant]
     Active Substance: SIMVASTATIN
  10. TAMSULOSIN HYDROCHLORIDE [Concomitant]
     Active Substance: TAMSULOSIN HYDROCHLORIDE
  11. WARFARIN SODIUM [Concomitant]
     Active Substance: WARFARIN SODIUM
  12. ULTOMIRIS [Suspect]
     Active Substance: RAVULIZUMAB-CWVZ

REACTIONS (16)
  - Malaise [Unknown]
  - Inflammatory marker increased [Unknown]
  - Haemoglobin decreased [Unknown]
  - Pain in extremity [Unknown]
  - Chest pain [Unknown]
  - Infection [Unknown]
  - Dyspnoea exertional [Unknown]
  - Chromaturia [Unknown]
  - Biliary tract disorder [Unknown]
  - Liver function test abnormal [Unknown]
  - Flatulence [None]
  - Chest discomfort [Unknown]
  - Jaundice [Unknown]
  - Pruritus [Unknown]
  - Gastrooesophageal reflux disease [Unknown]
  - Cholelithiasis [Unknown]
